FAERS Safety Report 21609614 (Version 13)
Quarter: 2023Q2

REPORT INFORMATION
  Report Type: Report from Study
  Country: BR (occurrence: None)
  Receive Date: 20221117
  Receipt Date: 20230621
  Transmission Date: 20230721
  Serious: Yes (Life-Threatening, Hospitalization, Disabling)
  Sender: FDA-Public Use
  Company Number: BR-Eisai Medical Research-EC-2022-128076

PATIENT
  Age: 77 Year
  Sex: Male
  Weight: 68 kg

DRUGS (8)
  1. LENVATINIB [Suspect]
     Active Substance: LENVATINIB
     Indication: Clear cell renal cell carcinoma
     Dosage: STARTING DOSE AT 20 MG, FLUCTUATED DOSAGE
     Route: 048
     Dates: start: 20220722, end: 20221012
  2. LENVATINIB [Suspect]
     Active Substance: LENVATINIB
     Route: 048
     Dates: start: 20221013, end: 20221013
  3. PEMBROLIZUMAB [Suspect]
     Active Substance: PEMBROLIZUMAB
     Indication: Clear cell renal cell carcinoma
     Route: 041
     Dates: start: 20220722, end: 20220831
  4. COMBIRON B 12 [Concomitant]
     Dates: start: 202202, end: 20221116
  5. CLONIDINE [Concomitant]
     Active Substance: CLONIDINE
     Dates: start: 20220824, end: 20221116
  6. MORPHINE SULFATE [Concomitant]
     Active Substance: MORPHINE SULFATE
     Dates: start: 20220824, end: 20221116
  7. HYDROXYZINE HYDROCHLORIDE [Concomitant]
     Active Substance: HYDROXYZINE HYDROCHLORIDE
     Dates: start: 20220824, end: 20220921
  8. LOSARTAN [Concomitant]
     Active Substance: LOSARTAN
     Dates: start: 20220824

REACTIONS (2)
  - Leukoencephalopathy [Recovered/Resolved]
  - Cervical cord compression [Recovering/Resolving]

NARRATIVE: CASE EVENT DATE: 20220921
